FAERS Safety Report 7718375-4 (Version None)
Quarter: 2011Q3

REPORT INFORMATION
  Report Type: 
  Country: None (occurrence: None)
  Receive Date: 20110830
  Receipt Date: 20110825
  Transmission Date: 20111222
  Serious: No
  Sender: FDA-Public Use
  Company Number: US-PFIZER INC-2011198460

PATIENT
  Sex: Female
  Weight: 81.179 kg

DRUGS (1)
  1. DILANTIN [Suspect]
     Indication: CONVULSION
     Dosage: 100 MG, 3X/DAY
     Route: 048
     Dates: start: 20110824

REACTIONS (9)
  - COORDINATION ABNORMAL [None]
  - NERVOUSNESS [None]
  - TREMOR [None]
  - DYSARTHRIA [None]
  - GAIT DISTURBANCE [None]
  - NAUSEA [None]
  - DIZZINESS [None]
  - CONFUSIONAL STATE [None]
  - HEADACHE [None]
